FAERS Safety Report 4646234-2 (Version None)
Quarter: 2005Q2

REPORT INFORMATION
  Report Type: 
  Country: None (occurrence: None)
  Receive Date: 20050427
  Receipt Date: 20050223
  Transmission Date: 20051028
  Serious: Yes (Hospitalization)
  Sender: FDA-Public Use
  Company Number: US-ROCHE-396583

PATIENT
  Age: 35 Year
  Sex: Male
  Weight: 74.4 kg

DRUGS (3)
  1. PEG-INTERFERON ALFA 2A (RO 25-8310) [Suspect]
     Route: 058
     Dates: start: 20050202, end: 20050220
  2. RIBAVIRIN [Suspect]
     Route: 048
     Dates: start: 20050202, end: 20050220
  3. EFFEXOR XR [Concomitant]
     Dates: start: 20041208

REACTIONS (4)
  - DELUSION [None]
  - LIMB INJURY [None]
  - MENTAL STATUS CHANGES [None]
  - PSYCHOTIC DISORDER [None]
